FAERS Safety Report 19766214 (Version 1)
Quarter: 2021Q3

REPORT INFORMATION
  Report Type: Spontaneous
  Country: US (occurrence: US)
  Receive Date: 20210826
  Receipt Date: 20210826
  Transmission Date: 20211014
  Serious: Yes (Death)
  Sender: FDA-Public Use
  Company Number: None

PATIENT
  Age: 57 Year
  Sex: Male

DRUGS (1)
  1. STIVARGA [Suspect]
     Active Substance: REGORAFENIB
     Indication: TESTIS CANCER
     Dosage: FREQUENCY TAKE 4 TABLETS BY MOUTH ONCE DAILY ON DAYS 1?21 OF EACH 23 DAY CYCLE?
     Route: 048
     Dates: start: 20210726

REACTIONS (2)
  - Testis cancer [None]
  - Disease progression [None]

NARRATIVE: CASE EVENT DATE: 20210728
